FAERS Safety Report 23627616 (Version 1)
Quarter: 2024Q1

REPORT INFORMATION
  Report Type: Spontaneous
  Country: US (occurrence: US)
  Receive Date: 20240313
  Receipt Date: 20240313
  Transmission Date: 20240410
  Serious: No
  Sender: FDA-Public Use
  Company Number: US-PURACAP-US-2024EPCSPO00276

PATIENT
  Age: 69 Year
  Sex: Female

DRUGS (1)
  1. ERGOCALCIFEROL [Suspect]
     Active Substance: ERGOCALCIFEROL
     Indication: Vitamin D decreased
     Route: 048
     Dates: start: 20230805, end: 2023

REACTIONS (1)
  - Diarrhoea [Recovered/Resolved]

NARRATIVE: CASE EVENT DATE: 20230805
